FAERS Safety Report 6347055-5 (Version None)
Quarter: 2009Q3

REPORT INFORMATION
  Report Type: 
  Country: None (occurrence: None)
  Receive Date: 20090909
  Receipt Date: 20090909
  Transmission Date: 20100115
  Serious: Yes (Hospitalization)
  Sender: FDA-Public Use
  Company Number: None

PATIENT
  Age: 33 Year
  Sex: Male
  Weight: 121.3 kg

DRUGS (2)
  1. KAPIDEX [Suspect]
     Indication: GASTROOESOPHAGEAL REFLUX DISEASE
     Dosage: 30 OR 60-PT NOT SURE DAILY PO ~1-2 MONTHS
     Route: 048
  2. METOPROLOL SUCCINATE [Concomitant]

REACTIONS (1)
  - ATRIAL FIBRILLATION [None]
